FAERS Safety Report 8854453 (Version 1)
Quarter: 2012Q4

REPORT INFORMATION
  Report Type: Spontaneous
  Country: US (occurrence: None)
  Receive Date: 20121022
  Receipt Date: 20121022
  Transmission Date: 20130627
  Serious: Yes (Hospitalization)
  Sender: FDA-Public Use
  Company Number: None

PATIENT
  Age: 50 Year
  Sex: Female

DRUGS (1)
  1. CEFOTAXIME [Suspect]
     Indication: SPONTANEOUS BACTERIAL PERITONITIS
     Route: 042
     Dates: start: 20121019, end: 20121020

REACTIONS (1)
  - Platelet count decreased [None]
